FAERS Safety Report 4965426-6 (Version None)
Quarter: 2006Q2

REPORT INFORMATION
  Report Type: 
  Country: None (occurrence: None)
  Receive Date: 20060406
  Receipt Date: 20050622
  Transmission Date: 20061013
  Serious: Yes (Hospitalization, Disabling)
  Sender: FDA-Public Use
  Company Number: US-MERCK-0506USA03303

PATIENT
  Age: 64 Year
  Sex: Female
  Weight: 68 kg

DRUGS (8)
  1. VIOXX [Suspect]
     Indication: ARTHRITIS
     Route: 048
     Dates: start: 20020101, end: 20030601
  2. PLENDIL [Concomitant]
     Route: 065
  3. NORVASC [Concomitant]
     Route: 048
  4. DIOVAN [Concomitant]
     Route: 048
  5. LIPITOR [Concomitant]
     Route: 048
  6. NEXIUM [Concomitant]
     Route: 048
  7. ALLEGRA [Concomitant]
     Route: 048
  8. PLAVIX [Concomitant]
     Route: 048

REACTIONS (3)
  - ANAEMIA [None]
  - CEREBROVASCULAR ACCIDENT [None]
  - SHOULDER PAIN [None]
